FAERS Safety Report 17975958 (Version 2)
Quarter: 2020Q3

REPORT INFORMATION
  Report Type: Spontaneous
  Country: US (occurrence: US)
  Receive Date: 20200702
  Receipt Date: 20200716
  Transmission Date: 20201103
  Serious: Yes (Other)
  Sender: FDA-Public Use
  Company Number: US-PRINSTON PHARMACEUTICAL INC.-2020PRN00224

PATIENT
  Sex: Female
  Weight: 42.18 kg

DRUGS (2)
  1. LISINOPRIL (LUPIN) [Suspect]
     Active Substance: LISINOPRIL
     Dosage: UNK
     Dates: start: 2019
  2. LISINOPRIL. [Suspect]
     Active Substance: LISINOPRIL
     Indication: HYPERTENSION
     Dosage: 20 MG, 2X/DAY
     Dates: start: 201906, end: 20200620

REACTIONS (5)
  - Anxiety [Unknown]
  - Drug ineffective [Not Recovered/Not Resolved]
  - Blood sodium decreased [Unknown]
  - Product substitution issue [Recovered/Resolved]
  - Hypertension [Not Recovered/Not Resolved]

NARRATIVE: CASE EVENT DATE: 2019
